FAERS Safety Report 9932710 (Version 2)
Quarter: 2014Q1

REPORT INFORMATION
  Report Type: Report from Study
  Country: US (occurrence: US)
  Receive Date: 20140228
  Receipt Date: 20140228
  Transmission Date: 20141002
  Serious: Yes (Hospitalization)
  Sender: FDA-Public Use
  Company Number: US-ABBVIE-13P-163-1067811-00

PATIENT
  Age: 33 Year
  Sex: Male
  Weight: 74.91 kg

DRUGS (19)
  1. ANDROGEL [Suspect]
     Indication: TESTICULAR FAILURE
     Dosage: 1 PACKET PER DAY
     Dates: start: 20110315, end: 201302
  2. ANDROGEL [Suspect]
     Dosage: 1 PACKET PER DAY
     Dates: start: 201303
  3. CALCIUM [Concomitant]
     Indication: PRODUCT USED FOR UNKNOWN INDICATION
  4. CELLCEPT [Concomitant]
     Indication: PRODUCT USED FOR UNKNOWN INDICATION
  5. CYMBALTA [Concomitant]
     Indication: PRODUCT USED FOR UNKNOWN INDICATION
  6. ELAVIL [Concomitant]
     Indication: PRODUCT USED FOR UNKNOWN INDICATION
  7. DIFLUCAN [Concomitant]
     Indication: PRODUCT USED FOR UNKNOWN INDICATION
  8. FOSAMAX [Concomitant]
     Indication: PRODUCT USED FOR UNKNOWN INDICATION
  9. LABETALOL [Concomitant]
     Indication: PRODUCT USED FOR UNKNOWN INDICATION
  10. LYRICA [Concomitant]
     Indication: PRODUCT USED FOR UNKNOWN INDICATION
  11. MOBIC [Concomitant]
     Indication: PRODUCT USED FOR UNKNOWN INDICATION
  12. NEURONTIN [Concomitant]
     Indication: PRODUCT USED FOR UNKNOWN INDICATION
  13. NORVASC [Concomitant]
     Indication: PRODUCT USED FOR UNKNOWN INDICATION
  14. PRILOSEC [Concomitant]
     Indication: PRODUCT USED FOR UNKNOWN INDICATION
  15. PROGRAF [Concomitant]
     Indication: PRODUCT USED FOR UNKNOWN INDICATION
  16. RESTASIS [Concomitant]
     Indication: PRODUCT USED FOR UNKNOWN INDICATION
  17. VALTREX [Concomitant]
     Indication: PRODUCT USED FOR UNKNOWN INDICATION
  18. VICODIN [Concomitant]
     Indication: PRODUCT USED FOR UNKNOWN INDICATION
  19. PAPANOL [Concomitant]

REACTIONS (1)
  - Sinusitis [Recovered/Resolved]
